FAERS Safety Report 7641418-3 (Version None)
Quarter: 2011Q3

REPORT INFORMATION
  Report Type: 
  Country: None (occurrence: None)
  Receive Date: 20110728
  Receipt Date: 20110726
  Transmission Date: 20111222
  Serious: Yes (Other)
  Sender: FDA-Public Use
  Company Number: CH-PFIZER INC-2011169492

PATIENT
  Age: 69 Year
  Sex: Male
  Weight: 72 kg

DRUGS (8)
  1. ATORVASTATIN CALCIUM [Suspect]
     Indication: MYOCARDIAL ISCHAEMIA
     Dosage: 20 MG, 1X/DAY
     Route: 048
     Dates: start: 20070701
  2. MARCOUMAR [Suspect]
     Indication: ATRIAL FIBRILLATION
     Dosage: 1 DF, AS NEEDED
     Route: 048
     Dates: start: 20080701
  3. MULTAQ [Suspect]
     Indication: ATRIAL FLUTTER
  4. METOPROLOL SUCCINATE [Concomitant]
     Indication: ATRIAL FIBRILLATION
     Dosage: 50 MG, 1X/DAY
     Route: 048
     Dates: start: 20070701
  5. METOPROLOL SUCCINATE [Concomitant]
     Indication: ATRIAL FLUTTER
  6. MARCOUMAR [Suspect]
     Indication: ATRIAL FLUTTER
  7. MULTAQ [Suspect]
     Indication: ATRIAL FIBRILLATION
     Dosage: 400 MG, 1X/DAY
     Route: 048
     Dates: start: 20110124, end: 20110712
  8. INHIBACE ^ROCHE^ [Concomitant]
     Indication: MITRAL VALVE INCOMPETENCE
     Dosage: 5 MG, 1X/DAY
     Route: 048
     Dates: start: 20070701

REACTIONS (2)
  - DRUG INTERACTION [None]
  - INTERNATIONAL NORMALISED RATIO INCREASED [None]
